FAERS Safety Report 5632294-9 (Version None)
Quarter: 2008Q1

REPORT INFORMATION
  Report Type: 
  Country: None (occurrence: None)
  Receive Date: 20080131
  Receipt Date: 20071119
  Transmission Date: 20080703
  Serious: No
  Sender: FDA-Public Use
  Company Number: 163-21880-07100452

PATIENT
  Age: 77 Year
  Sex: Female

DRUGS (1)
  1. REVLIMID [Suspect]
     Indication: MULTIPLE MYELOMA
     Dosage: 25 MG, DAILY X 14 DAYS, ORAL
     Route: 048
     Dates: start: 20070816

REACTIONS (5)
  - ANOREXIA [None]
  - ASTHENIA [None]
  - FALL [None]
  - FATIGUE [None]
  - SKELETAL INJURY [None]
